FAERS Safety Report 25024322 (Version 1)
Quarter: 2025Q1

REPORT INFORMATION
  Report Type: Spontaneous
  Country: US (occurrence: None)
  Receive Date: 20250227
  Receipt Date: 20250227
  Transmission Date: 20250409
  Serious: Yes (unspecified)
  Sender: FDA-CTU
  Company Number: None

PATIENT
  Age: 61 Year
  Sex: Female
  Weight: 81.3 kg

DRUGS (1)
  1. CEFTRIAXONE [Suspect]
     Active Substance: CEFTRIAXONE
     Route: 042
     Dates: start: 20250213, end: 20250213

REACTIONS (3)
  - Urticaria [None]
  - Pruritus [None]
  - Post procedural complication [None]

NARRATIVE: CASE EVENT DATE: 20250214
